FAERS Safety Report 14714279 (Version 1)
Quarter: 2018Q2

REPORT INFORMATION
  Report Type: Spontaneous
  Country: US (occurrence: US)
  Receive Date: 20180404
  Receipt Date: 20180404
  Transmission Date: 20180711
  Serious: No
  Sender: FDA-Public Use
  Company Number: US-ARBOR PHARMACEUTICALS, LLC-US-2017ARB000733

PATIENT

DRUGS (2)
  1. SKLICE [Suspect]
     Active Substance: IVERMECTIN
     Indication: LICE INFESTATION
     Dosage: UNK
     Route: 061
     Dates: start: 2017, end: 2017
  2. SKLICE [Suspect]
     Active Substance: IVERMECTIN
     Dosage: APPLIED FOR 10 MINUTES THEN RINSED WITH WATER
     Route: 061
     Dates: start: 2017, end: 2017

REACTIONS (1)
  - Multiple use of single-use product [Unknown]

NARRATIVE: CASE EVENT DATE: 2017
